FAERS Safety Report 10877772 (Version 1)
Quarter: 2015Q1

REPORT INFORMATION
  Report Type: Spontaneous
  Country: US (occurrence: None)
  Receive Date: 20150224
  Receipt Date: 20150224
  Transmission Date: 20150721
  Serious: Yes (Congenital Anomaly)
  Sender: FDA-Public Use
  Company Number: 2765141

PATIENT
  Sex: Male
  Weight: 1 kg

DRUGS (3)
  1. NIFEDIPINE. [Suspect]
     Active Substance: NIFEDIPINE
     Dosage: 1 DOSE, UNKNOWN, TRANSPLACENTAL
     Route: 064
  2. LABETALOL HYDROCHLORIDE. [Suspect]
     Active Substance: LABETALOL HYDROCHLORIDE
     Route: 064
  3. HYDRALAZINE [Suspect]
     Active Substance: HYDRALAZINE HYDROCHLORIDE
     Dosage: 1 DOSE, UNKNOWN, TRANSPLACENTAL
     Route: 064

REACTIONS (10)
  - Hypotension [None]
  - Caesarean section [None]
  - Bradycardia neonatal [None]
  - Renal failure [None]
  - Apgar score low [None]
  - Cerebral ventricle dilatation [None]
  - Hypoxia [None]
  - Bradycardia foetal [None]
  - Hypoglycaemia neonatal [None]
  - Maternal drugs affecting foetus [None]
